FAERS Safety Report 5605698-8 (Version None)
Quarter: 2008Q1

REPORT INFORMATION
  Report Type: 
  Country: None (occurrence: None)
  Receive Date: 20080129
  Receipt Date: 20080118
  Transmission Date: 20080703
  Serious: Yes (Other)
  Sender: FDA-Public Use
  Company Number: DE-BAYER-200811559GPV

PATIENT
  Sex: Male

DRUGS (1)
  1. ULTRAVIST 150 [Suspect]
     Indication: POSITRON EMISSION TOMOGRAM
     Dates: start: 20080111

REACTIONS (4)
  - APHONIA [None]
  - DYSPNOEA [None]
  - LARYNGEAL OEDEMA [None]
  - THROAT TIGHTNESS [None]
